FAERS Safety Report 6196940-6 (Version None)
Quarter: 2009Q2

REPORT INFORMATION
  Report Type: 
  Country: None (occurrence: None)
  Receive Date: 20090518
  Receipt Date: 20090506
  Transmission Date: 20091009
  Serious: Yes (Other)
  Sender: FDA-Public Use
  Company Number: 266341

PATIENT
  Age: 40 Year
  Sex: Female

DRUGS (1)
  1. MITOXANTRONE HYDROCHLORIDE [Suspect]
     Indication: SECONDARY PROGRESSIVE MULTIPLE SCLEROSIS
     Dosage: CUMULATIVE DOSE:  120 MG/M^2

REACTIONS (1)
  - ACUTE LYMPHOCYTIC LEUKAEMIA [None]
